FAERS Safety Report 6864944-3 (Version None)
Quarter: 2010Q3

REPORT INFORMATION
  Report Type: 
  Country: None (occurrence: None)
  Receive Date: 20100721
  Receipt Date: 20080413
  Transmission Date: 20110219
  Serious: No
  Sender: FDA-Public Use
  Company Number: US-PFIZER INC-2008034379

PATIENT
  Age: 47 Year
  Sex: Female
  Weight: 97.7 kg

DRUGS (4)
  1. CHANTIX [Suspect]
     Indication: SMOKING CESSATION THERAPY
     Dates: start: 20080408
  2. HYZAAR [Concomitant]
  3. VYTORIN [Concomitant]
  4. LEXAPRO [Concomitant]

REACTIONS (4)
  - ABDOMINAL PAIN UPPER [None]
  - FLATULENCE [None]
  - INSOMNIA [None]
  - NAUSEA [None]
